FAERS Safety Report 14899181 (Version 2)
Quarter: 2018Q2

REPORT INFORMATION
  Report Type: Spontaneous
  Country: US (occurrence: US)
  Receive Date: 20180516
  Receipt Date: 20180525
  Transmission Date: 20180711
  Serious: Yes (Hospitalization)
  Sender: FDA-Public Use
  Company Number: US-ALEMBIC PHARMACUETICALS LIMITED-2018SCAL000329

PATIENT

DRUGS (2)
  1. LITHIUM CARBONATE. [Suspect]
     Active Substance: LITHIUM CARBONATE
     Indication: BIPOLAR DISORDER
     Dosage: 125 MILLIGRAM, BID
     Route: 065
  2. LITHIUM CARBONATE. [Suspect]
     Active Substance: LITHIUM CARBONATE
     Dosage: 125 MILLIGRAM, QD
     Route: 065

REACTIONS (9)
  - Resting tremor [Unknown]
  - Muscle rigidity [Unknown]
  - Asthenia [Unknown]
  - Mental status changes [Unknown]
  - Bradykinesia [Unknown]
  - Somnolence [Unknown]
  - Withdrawal syndrome [Unknown]
  - Parkinsonism [Unknown]
  - Gait disturbance [Unknown]
